FAERS Safety Report 6130840-2 (Version None)
Quarter: 2009Q1

REPORT INFORMATION
  Report Type: 
  Country: None (occurrence: None)
  Receive Date: 20090323
  Receipt Date: 20090312
  Transmission Date: 20090719
  Serious: Yes (Life-Threatening)
  Sender: FDA-Public Use
  Company Number: GXKR2009GB03276

PATIENT
  Age: 84 Year
  Sex: Female
  Weight: 60 kg

DRUGS (6)
  1. CO-AMOXICLAV (NGX) (AMOXICILLIN, CLAVULANATE) [Suspect]
     Indication: CHOLECYSTITIS
     Dosage: 1.2 G, TID, INTRAVENOUS
     Route: 042
     Dates: start: 20090127, end: 20090130
  2. METRONIDAZOLE [Suspect]
     Indication: CHOLECYSTITIS
     Dosage: 500 MG, BID , INTRAVENOUS
     Route: 042
     Dates: start: 20090127, end: 20090130
  3. ATORVASTATIN CALCIUM [Concomitant]
  4. DOMPERIDONE (DOMPERIDONE) [Concomitant]
  5. PERINDOPRIL ERBUMINE [Concomitant]
  6. QUINNE SULPHATE (QUINNE SULPHATE) [Concomitant]

REACTIONS (4)
  - COMA [None]
  - CONFUSIONAL STATE [None]
  - DIPLOPIA [None]
  - HYPOGLYCAEMIA [None]
